FAERS Safety Report 24106602 (Version 1)
Quarter: 2024Q3

REPORT INFORMATION
  Report Type: Spontaneous
  Country: US (occurrence: US)
  Receive Date: 20240717
  Receipt Date: 20240717
  Transmission Date: 20241016
  Serious: Yes (Hospitalization, Other)
  Sender: SANDOZ
  Company Number: US-SANDOZ-SDZ2024US064801

PATIENT
  Age: 71 Year
  Sex: Female
  Weight: 57.3 kg

DRUGS (2)
  1. CLOFAZIMINE [Suspect]
     Active Substance: CLOFAZIMINE
     Indication: Peritoneal tuberculosis
     Dosage: 100 MG, QD
     Route: 048
     Dates: start: 20240529, end: 20240625
  2. ONDANSETRON [Suspect]
     Active Substance: ONDANSETRON
     Indication: Nausea
     Dosage: 40 MG, BID
     Route: 065
     Dates: start: 20240625

REACTIONS (5)
  - Electrocardiogram QT prolonged [Recovered/Resolved]
  - Gastrointestinal haemorrhage [Recovering/Resolving]
  - Anaemia [Recovering/Resolving]
  - Gastrointestinal tract adenoma [Unknown]
  - Oesophagitis [Unknown]

NARRATIVE: CASE EVENT DATE: 20240625
